FAERS Safety Report 9167630 (Version 1)
Quarter: 2013Q1

REPORT INFORMATION
  Report Type: Spontaneous
  Country: FR (occurrence: None)
  Receive Date: 20130307
  Receipt Date: 20130307
  Transmission Date: 20140127
  Serious: Yes (Hospitalization)
  Sender: FDA-Public Use
  Company Number: 2013000039

PATIENT
  Age: 66 Year
  Sex: Female

DRUGS (3)
  1. ACEON (PERINDOPRIL ERBUMINE) TABLET [Suspect]
     Dosage: UNK, ORAL
     Route: 048
     Dates: end: 20121219
  2. MABTHERA [Suspect]
     Dosage: UNK, INTRAVENOUS
     Route: 042
     Dates: start: 20121219, end: 20121219
  3. POLARAMINE (DEXCHLORPHENIRAMINE MALEATE) [Suspect]
     Dosage: UNK, INTRAVENOUS)
     Route: 042
     Dates: start: 20121219, end: 20121219

REACTIONS (7)
  - Chills [None]
  - Malaise [None]
  - Pallor [None]
  - Hyperhidrosis [None]
  - Nausea [None]
  - Dermatitis exfoliative [None]
  - Pyrexia [None]
